FAERS Safety Report 8530376-5 (Version None)
Quarter: 2012Q3

REPORT INFORMATION
  Report Type: 
  Country: None (occurrence: None)
  Receive Date: 20120723
  Receipt Date: 20120705
  Transmission Date: 20120928
  Serious: No
  Sender: FDA-Public Use
  Company Number: US-009507513-2012SP030537

PATIENT

DRUGS (4)
  1. VICTRELIS [Suspect]
  2. PEG-INTRON [Interacting]
  3. TAMSULOSIN HYDROCHLORIDE [Concomitant]
  4. REBETOL [Interacting]

REACTIONS (1)
  - DRUG INTERACTION [None]
